FAERS Safety Report 7259759-0 (Version None)
Quarter: 2011Q1

REPORT INFORMATION
  Report Type: 
  Country: None (occurrence: None)
  Receive Date: 20110130
  Receipt Date: 20100901
  Transmission Date: 20110831
  Serious: No
  Sender: FDA-Public Use
  Company Number: US-ABBOTT-10P-163-0663191-00

PATIENT
  Age: 60 Year
  Sex: Male

DRUGS (10)
  1. LEXAPRO [Concomitant]
     Indication: DEPRESSION
  2. DIOVAN [Concomitant]
     Indication: HYPERTENSION
  3. HYDROCHLOROTHIAZIDE [Concomitant]
     Indication: HYPERTENSION
  4. LEXAPRO [Concomitant]
     Indication: ANXIETY
  5. ASPIRIN [Concomitant]
     Indication: THROMBOSIS PROPHYLAXIS
  6. HUMIRA [Suspect]
     Indication: CROHN'S DISEASE
     Dates: start: 20100723
  7. NAFTIN [Concomitant]
     Indication: ARTHRITIS
  8. ENTOCORT EC [Concomitant]
     Indication: CROHN'S DISEASE
  9. NORVASC [Concomitant]
     Indication: HYPERTENSION
  10. NAMENDA [Concomitant]
     Indication: MEMORY IMPAIRMENT

REACTIONS (7)
  - ONYCHOMYCOSIS [None]
  - CONTUSION [None]
  - ACNE [None]
  - RASH MACULAR [None]
  - LOCAL SWELLING [None]
  - PURULENT DISCHARGE [None]
  - PRURITUS [None]
